FAERS Safety Report 9761934 (Version 1)
Quarter: 2013Q4

REPORT INFORMATION
  Report Type: Spontaneous
  Country: US (occurrence: US)
  Receive Date: 20131216
  Receipt Date: 20131216
  Transmission Date: 20140711
  Serious: No
  Sender: FDA-Public Use
  Company Number: US-BIOGENIDEC-2013BI106260

PATIENT
  Sex: Female

DRUGS (8)
  1. TECFIDERA [Suspect]
     Indication: MULTIPLE SCLEROSIS
     Route: 048
  2. NORA-BE [Concomitant]
  3. VALPROIC ACID [Concomitant]
  4. CLOZAPINE [Concomitant]
  5. BACLOFEN [Concomitant]
  6. ASPIRIN [Concomitant]
  7. IRON [Concomitant]
  8. SELENIUM [Concomitant]

REACTIONS (1)
  - Urine odour abnormal [Unknown]
